FAERS Safety Report 6676753-9 (Version None)
Quarter: 2010Q2

REPORT INFORMATION
  Report Type: 
  Country: None (occurrence: None)
  Receive Date: 20100412
  Receipt Date: 20100406
  Transmission Date: 20101027
  Serious: Yes (Other)
  Sender: FDA-Public Use
  Company Number: BR-BAYER-201013331LA

PATIENT
  Age: 61 Year
  Sex: Female

DRUGS (1)
  1. MAGNEVISTAN [Suspect]
     Indication: DRUG USE FOR UNKNOWN INDICATION
     Route: 042
     Dates: start: 20100405, end: 20100405

REACTIONS (1)
  - DYSPHAGIA [None]
